FAERS Safety Report 12386212 (Version 3)
Quarter: 2016Q3

REPORT INFORMATION
  Report Type: Report from Study
  Country: CZ (occurrence: CZ)
  Receive Date: 20160519
  Receipt Date: 20160712
  Transmission Date: 20161109
  Serious: Yes (Hospitalization)
  Sender: FDA-Public Use
  Company Number: CZ-EISAI MEDICAL RESEARCH-EC-2016-016889

PATIENT
  Age: 45 Year
  Sex: Male
  Weight: 85 kg

DRUGS (10)
  1. RIVOTRIL [Concomitant]
     Active Substance: CLONAZEPAM
  2. CIPRALEX [Concomitant]
     Active Substance: ESCITALOPRAM OXALATE
  3. DIAZEPAM. [Concomitant]
     Active Substance: DIAZEPAM
  4. FYCOMPA [Suspect]
     Active Substance: PERAMPANEL
     Route: 048
     Dates: start: 20160208, end: 20160421
  5. LAMICTAL [Concomitant]
     Active Substance: LAMOTRIGINE
  6. FYCOMPA [Suspect]
     Active Substance: PERAMPANEL
     Route: 048
     Dates: start: 20160422, end: 20160502
  7. KEPPRA [Concomitant]
     Active Substance: LEVETIRACETAM
  8. FYCOMPA [Suspect]
     Active Substance: PERAMPANEL
     Indication: PARTIAL SEIZURES
     Route: 048
     Dates: start: 20160125, end: 20160207
  9. FOLIC ACID. [Concomitant]
     Active Substance: FOLIC ACID
  10. EWOFEX [Concomitant]

REACTIONS (2)
  - Seizure [Recovered/Resolved]
  - Vertigo [Recovered/Resolved]

NARRATIVE: CASE EVENT DATE: 20160414
